FAERS Safety Report 21212631 (Version 1)
Quarter: 2022Q3

REPORT INFORMATION
  Report Type: Spontaneous
  Country: US (occurrence: None)
  Receive Date: 20220814
  Receipt Date: 20220814
  Transmission Date: 20221027
  Serious: Yes (Disabling, Other)
  Sender: FDA-Public Use
  Company Number: None

PATIENT
  Age: 42 Year
  Sex: Male
  Weight: 65.25 kg

DRUGS (3)
  1. INSULIN LISPRO [Suspect]
     Active Substance: INSULIN LISPRO
     Indication: Type 1 diabetes mellitus
     Dosage: OTHER QUANTITY : 30 INJECTION(S);?OTHER FREQUENCY : DAILY INSULIN PUMP;?OTHER ROUTE : INJECTED VIA I
     Route: 050
     Dates: start: 20010701, end: 20220814
  2. HUMALOG [Concomitant]
     Active Substance: INSULIN LISPRO
  3. DEVICE\INSULIN NOS [Concomitant]
     Active Substance: DEVICE\INSULIN NOS

REACTIONS (2)
  - Eye pain [None]
  - Product substitution issue [None]

NARRATIVE: CASE EVENT DATE: 20220814
